FAERS Safety Report 4451781-2 (Version None)
Quarter: 2004Q3

REPORT INFORMATION
  Report Type: 
  Country: None (occurrence: None)
  Receive Date: 20040812
  Receipt Date: 20040510
  Transmission Date: 20050211
  Serious: No
  Sender: FDA-Public Use
  Company Number: USA040567028

PATIENT
  Age: 81 Year
  Sex: Male
  Weight: 95 kg

DRUGS (5)
  1. CIALIS [Suspect]
     Dosage: 20 MG AS NEEDED
     Dates: start: 20040508
  2. YOHIMBINE [Concomitant]
  3. GINSENG [Concomitant]
  4. ONE-A-DAY VITAMIN [Concomitant]
  5. NEXIUM [Concomitant]

REACTIONS (1)
  - DRUG INEFFECTIVE [None]
